FAERS Safety Report 8976790 (Version 1)
Quarter: 2012Q4

REPORT INFORMATION
  Report Type: 
  Country: ES (occurrence: ES)
  Receive Date: 20121220
  Receipt Date: 20121220
  Transmission Date: 20130627
  Serious: Yes (Hospitalization)
  Sender: FDA-Public Use
  Company Number: ES-ELI_LILLY_AND_COMPANY-ES201212004847

PATIENT
  Age: 58 Year
  Sex: Female

DRUGS (1)
  1. FORSTEO [Suspect]
     Dosage: UNK
     Dates: start: 20120307

REACTIONS (3)
  - Arthralgia [Recovering/Resolving]
  - Arthritis [Recovering/Resolving]
  - Pain in extremity [Unknown]
